FAERS Safety Report 16668965 (Version 1)
Quarter: 2019Q3

REPORT INFORMATION
  Report Type: Spontaneous
  Country: US (occurrence: US)
  Receive Date: 20190620
  Receipt Date: 20190620
  Transmission Date: 20191004
  Serious: No
  Sender: FDA-Public Use
  Company Number: None

PATIENT
  Sex: Male

DRUGS (1)
  1. HUMIRA [Suspect]
     Active Substance: ADALIMUMAB
     Indication: PSORIATIC ARTHROPATHY
     Dosage: ?          OTHER DOSE:40/0.8ML;OTHER ROUTE:UNDER THE SKIN?
     Dates: start: 20190418

REACTIONS (2)
  - Drug monitoring procedure not performed [None]
  - Hepatic enzyme increased [None]
